FAERS Safety Report 6234714-8 (Version None)
Quarter: 2009Q2

REPORT INFORMATION
  Report Type: 
  Country: None (occurrence: None)
  Receive Date: 20090616
  Receipt Date: 20090616
  Transmission Date: 20091009
  Serious: Yes (Other)
  Sender: FDA-Public Use
  Company Number: None

PATIENT
  Sex: Female
  Weight: 52.1637 kg

DRUGS (3)
  1. KEPPRA [Suspect]
     Indication: COMPLEX PARTIAL SEIZURES
     Dosage: 1500MG  BID PO
     Route: 048
     Dates: start: 20090412, end: 20090615
  2. LAMICTAL [Concomitant]
  3. PAXIL [Concomitant]

REACTIONS (5)
  - AFFECTIVE DISORDER [None]
  - AGGRESSION [None]
  - CRYING [None]
  - IRRITABILITY [None]
  - SCREAMING [None]
